FAERS Safety Report 6659765-0 (Version None)
Quarter: 2010Q1

REPORT INFORMATION
  Report Type: 
  Country: None (occurrence: None)
  Receive Date: 20100330
  Receipt Date: 20100319
  Transmission Date: 20100710
  Serious: Yes (Other)
  Sender: FDA-Public Use
  Company Number: AR-MERCK-1003ARG00004

PATIENT
  Age: 71 Year
  Sex: Female

DRUGS (5)
  1. FOSAMAX [Suspect]
     Indication: OSTEOPENIA
     Route: 065
     Dates: start: 19920101, end: 20040101
  2. IBANDRONATE SODIUM [Concomitant]
     Route: 065
     Dates: start: 20040101, end: 20080101
  3. CALCIUM CARBONATE [Concomitant]
     Route: 065
  4. CALCIUM (UNSPECIFIED) [Concomitant]
     Indication: OSTEOPENIA
     Route: 065
     Dates: start: 19920101, end: 20040101
  5. VITAMIN D (UNSPECIFIED) [Concomitant]
     Indication: OSTEOPENIA
     Route: 065
     Dates: start: 19920101, end: 20040101

REACTIONS (1)
  - FEMUR FRACTURE [None]
